FAERS Safety Report 4921389-0 (Version None)
Quarter: 2006Q1

REPORT INFORMATION
  Report Type: 
  Country: None (occurrence: None)
  Receive Date: 20060224
  Receipt Date: 20060221
  Transmission Date: 20060701
  Serious: No
  Sender: FDA-Public Use
  Company Number: 2006PK00376

PATIENT
  Sex: Male

DRUGS (4)
  1. SEROQUEL [Suspect]
     Route: 048
  2. VENLAFAXINE HCL [Concomitant]
  3. DIGITALIS [Concomitant]
  4. DIURETICS [Concomitant]

REACTIONS (1)
  - LEUKOPENIA [None]
